FAERS Safety Report 9939079 (Version 1)
Quarter: 2014Q1

REPORT INFORMATION
  Report Type: Spontaneous
  Country: US (occurrence: US)
  Receive Date: 20140303
  Receipt Date: 20140303
  Transmission Date: 20141002
  Serious: No
  Sender: FDA-Public Use
  Company Number: US-ABBVIE-13P-163-1036926-00

PATIENT
  Age: 64 Year
  Sex: Male

DRUGS (6)
  1. HUMIRA [Suspect]
     Indication: RHEUMATOID ARTHRITIS
     Dates: start: 201206
  2. HUMIRA [Suspect]
  3. LEFLUNOMIDE [Concomitant]
     Indication: RHEUMATOID ARTHRITIS
  4. BENICAR [Concomitant]
     Indication: INTERVERTEBRAL DISC OPERATION
  5. JANUMET [Concomitant]
     Indication: TYPE 2 DIABETES MELLITUS
  6. ASPIRIN [Concomitant]
     Indication: PRODUCT USED FOR UNKNOWN INDICATION
     Dosage: DAILY

REACTIONS (3)
  - Pain in extremity [Recovering/Resolving]
  - Joint swelling [Recovering/Resolving]
  - Incorrect product storage [Unknown]
